FAERS Safety Report 7020429-5 (Version None)
Quarter: 2010Q3

REPORT INFORMATION
  Report Type: 
  Country: None (occurrence: None)
  Receive Date: 20100929
  Receipt Date: 20100922
  Transmission Date: 20110219
  Serious: Yes (Death, Other)
  Sender: FDA-Public Use
  Company Number: JP-JNJFOC-20100906441

PATIENT
  Sex: Male

DRUGS (2)
  1. DUROTEP [Suspect]
     Indication: CANCER PAIN
     Route: 062
  2. DUROTEP [Suspect]
     Route: 062

REACTIONS (3)
  - ALTERED STATE OF CONSCIOUSNESS [None]
  - MALIGNANT NEOPLASM PROGRESSION [None]
  - SOMNOLENCE [None]
